FAERS Safety Report 23662752 (Version 1)
Quarter: 2024Q1

REPORT INFORMATION
  Report Type: Other
  Country: US (occurrence: US)
  Receive Date: 20240322
  Receipt Date: 20240322
  Transmission Date: 20240410
  Serious: Yes (Hospitalization, Other)
  Sender: FDA-Public Use
  Company Number: US-Guardian Drug Company-2154687

PATIENT
  Age: 34 Year
  Sex: Male

DRUGS (1)
  1. CHILDRENS IBUPROFEN [Suspect]
     Active Substance: IBUPROFEN
     Route: 048

REACTIONS (8)
  - Shock [Recovered/Resolved]
  - Intentional overdose [Unknown]
  - Polyuria [Recovered/Resolved]
  - Renal tubular necrosis [Recovering/Resolving]
  - Renal failure [Recovering/Resolving]
  - Multiple organ dysfunction syndrome [Unknown]
  - Coma [Unknown]
  - Metabolic acidosis [Recovering/Resolving]
